FAERS Safety Report 25941110 (Version 1)
Quarter: 2025Q4

REPORT INFORMATION
  Report Type: Spontaneous
  Country: EU (occurrence: EU)
  Receive Date: 20251020
  Receipt Date: 20251020
  Transmission Date: 20260117
  Serious: Yes (Other)
  Sender: ROCHE
  Company Number: None

PATIENT
  Age: 69 Year
  Sex: Male
  Weight: 71.7 kg

DRUGS (31)
  1. GANCICLOVIR [Suspect]
     Active Substance: GANCICLOVIR
     Indication: Cytomegalovirus infection
     Route: 048
     Dates: start: 20210301, end: 20210601
  2. GANCICLOVIR [Suspect]
     Active Substance: GANCICLOVIR
     Route: 048
     Dates: start: 20210628, end: 20211031
  3. GANCICLOVIR [Suspect]
     Active Substance: GANCICLOVIR
     Route: 048
     Dates: start: 20211102, end: 20220302
  4. GANCICLOVIR [Suspect]
     Active Substance: GANCICLOVIR
     Route: 048
     Dates: start: 20220302, end: 20221212
  5. GANCICLOVIR [Suspect]
     Active Substance: GANCICLOVIR
     Route: 048
     Dates: start: 20221213, end: 20230302
  6. GANCICLOVIR [Suspect]
     Active Substance: GANCICLOVIR
     Route: 048
     Dates: start: 20230303
  7. VALGANCICLOVIR [Suspect]
     Active Substance: VALGANCICLOVIR
     Indication: Cytomegalovirus infection
     Route: 065
     Dates: start: 202103, end: 202106
  8. VALGANCICLOVIR [Suspect]
     Active Substance: VALGANCICLOVIR
     Dosage: RESUMPTION; 450 MG EVERY OTHER DAY
     Route: 065
     Dates: start: 202106
  9. VALGANCICLOVIR [Suspect]
     Active Substance: VALGANCICLOVIR
     Route: 065
     Dates: start: 202409, end: 202411
  10. HUMAN CYTOMEGALOVIRUS IMMUNE GLOBULIN [Suspect]
     Active Substance: HUMAN CYTOMEGALOVIRUS IMMUNE GLOBULIN
     Indication: Cytomegalovirus infection
     Route: 065
     Dates: start: 202401, end: 202407
  11. PROGRAF [Concomitant]
     Active Substance: TACROLIMUS
     Dosage: 1.5 MG AT 10 A.M. AND 1.5 MG AT 10 P.M.
     Route: 065
  12. CELLCEPT [Concomitant]
     Active Substance: MYCOPHENOLATE MOFETIL
     Dosage: STOPPED
     Route: 065
  13. PREDNISONE [Concomitant]
     Active Substance: PREDNISONE
     Route: 065
  14. BACTRIM [Concomitant]
     Active Substance: SULFAMETHOXAZOLE\TRIMETHOPRIM
     Dosage: 1 TABLET MONDAY, WEDNESDAY, FRIDAY
     Route: 065
  15. LIVTENCITY [Concomitant]
     Active Substance: MARIBAVIR
     Dosage: 400 MG (2 TABLETS) MORNING AND EVENING
     Route: 065
     Dates: start: 20250827
  16. AZITHROMYCIN [Concomitant]
     Active Substance: AZITHROMYCIN
     Dosage: 250 MG MONDAY, WEDNESDAY, FRIDAY
     Route: 065
  17. CALCIUM CARBONATE\CHOLECALCIFEROL [Concomitant]
     Active Substance: CALCIUM CARBONATE\CHOLECALCIFEROL
     Dosage: 2 TABLETS MORNING
     Route: 065
  18. INDAPAMIDE\PERINDOPRIL ARGININE [Concomitant]
     Active Substance: INDAPAMIDE\PERINDOPRIL ARGININE
     Dosage: 1 TABLET IN THE MORNING
     Route: 065
  19. ELIQUIS [Concomitant]
     Active Substance: APIXABAN
     Dosage: 2.5 MG MORNING AND EVENING
     Route: 065
  20. DAPAGLIFLOZIN [Concomitant]
     Active Substance: DAPAGLIFLOZIN
     Dosage: 10 MG MORNING
     Route: 065
  21. IMOVANE [Concomitant]
     Active Substance: ZOPICLONE
     Dosage: 1 TABLET AT BEDTIME IF NEEDED
     Route: 065
  22. ALPRAZOLAM [Concomitant]
     Active Substance: ALPRAZOLAM
     Dosage: 1 TABLET IN THE EVENING IF NEEDED
     Route: 065
  23. SILODOSIN [Concomitant]
     Active Substance: SILODOSIN
     Dosage: 8 MG EVENING
     Route: 065
  24. LYRICA [Concomitant]
     Active Substance: PREGABALIN
     Dosage: 25 MG MORNING, 50 MG EVENING
     Route: 065
  25. RABEPRAZOLE [Concomitant]
     Active Substance: RABEPRAZOLE
     Dosage: 10 MG 1 TABLET IN THE MORNING
     Route: 065
  26. ACETAMINOPHEN [Concomitant]
     Active Substance: ACETAMINOPHEN
     Dosage: 1 G EVERY 6 HOURS IF PAIN OCCURS
     Route: 065
  27. LIDOCAINE [Concomitant]
     Active Substance: LIDOCAINE
     Dosage: 1 PATCH EVERY 16 HOURS ON THE PAINFUL AREA
     Route: 065
  28. NOVORAPID [Concomitant]
     Active Substance: INSULIN ASPART
     Dosage: 10 IU MORNING, TO BE ADJUSTED ACCORDING TO PREPRANDIAL BLOOD SUGAR LEVELS
     Route: 065
  29. TOUJEO [Concomitant]
     Active Substance: INSULIN GLARGINE
     Dosage: 10 IU MORNING
     Route: 065
  30. COLCHICINE [Concomitant]
     Active Substance: COLCHICINE
     Route: 065
     Dates: start: 1997
  31. XARELTO [Concomitant]
     Active Substance: RIVAROXABAN
     Indication: Pulmonary embolism
     Route: 065

REACTIONS (2)
  - Genotype drug resistance test positive [Not Recovered/Not Resolved]
  - Off label use [Unknown]

NARRATIVE: CASE EVENT DATE: 20250827
